FAERS Safety Report 13151660 (Version 5)
Quarter: 2018Q4

REPORT INFORMATION
  Report Type: Report from Study
  Country: US (occurrence: US)
  Receive Date: 20170125
  Receipt Date: 20181001
  Transmission Date: 20190204
  Serious: Yes (Other)
  Sender: FDA-Public Use
  Company Number: PHHY2017US008481

PATIENT
  Age: 33 Year
  Sex: Female

DRUGS (1)
  1. GILENYA [Suspect]
     Active Substance: FINGOLIMOD HYDROCHLORIDE
     Indication: MULTIPLE SCLEROSIS
     Dosage: UNK, QD
     Route: 048

REACTIONS (12)
  - Back pain [Unknown]
  - Paraesthesia [Unknown]
  - Micturition urgency [Unknown]
  - Urinary incontinence [Unknown]
  - White blood cell count decreased [Recovered/Resolved]
  - Central nervous system lesion [Unknown]
  - Fatigue [Unknown]
  - Neck pain [Unknown]
  - Lymphocyte count decreased [Unknown]
  - Lymphocyte count decreased [Recovered/Resolved]
  - Migraine [Unknown]
  - Upper respiratory tract infection [Unknown]

NARRATIVE: CASE EVENT DATE: 20160908
